FAERS Safety Report 20112532 (Version 1)
Quarter: 2021Q4

REPORT INFORMATION
  Report Type: Report from Study
  Country: CO (occurrence: None)
  Receive Date: 20211125
  Receipt Date: 20211125
  Transmission Date: 20220304
  Serious: Yes (Other)
  Sender: FDA-Public Use
  Company Number: 2021A816587

PATIENT
  Age: 20836 Day
  Sex: Female

DRUGS (1)
  1. OLAPARIB [Suspect]
     Active Substance: OLAPARIB
     Indication: Ovarian cancer
     Route: 048
     Dates: start: 2014, end: 20211001

REACTIONS (2)
  - Carbohydrate antigen 125 increased [Unknown]
  - Drug ineffective [Unknown]

NARRATIVE: CASE EVENT DATE: 20211001
